FAERS Safety Report 24151332 (Version 1)
Quarter: 2024Q3

REPORT INFORMATION
  Report Type: Report from Study
  Country: US (occurrence: US)
  Receive Date: 20240730
  Receipt Date: 20240730
  Transmission Date: 20241017
  Serious: No
  Sender: ALEXION PHARMACEUTICALS
  Company Number: US-ALXN-A202312657

PATIENT
  Age: 77 Year
  Sex: Male

DRUGS (1)
  1. ULTOMIRIS [Suspect]
     Active Substance: RAVULIZUMAB-CWVZ
     Indication: Myasthenia gravis
     Dosage: UNK
     Route: 065
     Dates: start: 20230817

REACTIONS (2)
  - Eyelid ptosis [Unknown]
  - Limb discomfort [Unknown]

NARRATIVE: CASE EVENT DATE: 20230902
